FAERS Safety Report 14837393 (Version 1)
Quarter: 2018Q2

REPORT INFORMATION
  Report Type: Spontaneous
  Country: JP (occurrence: JP)
  Receive Date: 20180502
  Receipt Date: 20180502
  Transmission Date: 20180711
  Serious: Yes (Hospitalization)
  Sender: FDA-Public Use
  Company Number: JP-JNJFOC-20180500906

PATIENT
  Age: 25 Year
  Sex: Female
  Weight: 56 kg

DRUGS (15)
  1. PROGRAF [Suspect]
     Active Substance: TACROLIMUS\TACROLIMUS ANHYDROUS
     Indication: PROPHYLAXIS AGAINST TRANSPLANT REJECTION
     Route: 042
     Dates: start: 20170713, end: 20170722
  2. CELLCEPT [Suspect]
     Active Substance: MYCOPHENOLATE MOFETIL\MYCOPHENOLATE MOFETIL HYDROCHLORIDE
     Indication: LUNG TRANSPLANT
     Route: 048
     Dates: start: 20170714
  3. MAGNESIUM OXIDE. [Suspect]
     Active Substance: MAGNESIUM OXIDE
     Indication: LUNG TRANSPLANT
     Route: 048
     Dates: start: 20170811
  4. DAIPHEN [Suspect]
     Active Substance: SULFAMETHOXAZOLE\TRIMETHOPRIM
     Indication: LUNG TRANSPLANT
     Route: 048
     Dates: start: 20170726
  5. FUNGIZONE [Suspect]
     Active Substance: AMPHOTERICIN B
     Indication: LUNG TRANSPLANT
     Route: 065
     Dates: start: 20170713
  6. HUMALOG [Concomitant]
     Active Substance: INSULIN LISPRO
     Indication: PRODUCT USED FOR UNKNOWN INDICATION
     Route: 065
     Dates: start: 20170818
  7. PARIET [Suspect]
     Active Substance: RABEPRAZOLE SODIUM
     Indication: LUNG TRANSPLANT
     Route: 048
     Dates: start: 20170723
  8. GRACEPTOR [Suspect]
     Active Substance: TACROLIMUS
     Indication: PROPHYLAXIS AGAINST TRANSPLANT REJECTION
     Route: 048
     Dates: start: 20171108, end: 20180302
  9. GRACEPTOR [Suspect]
     Active Substance: TACROLIMUS
     Indication: PROPHYLAXIS AGAINST TRANSPLANT REJECTION
     Route: 048
     Dates: start: 20180303
  10. ITRACONAZOLE. [Suspect]
     Active Substance: ITRACONAZOLE
     Indication: LUNG TRANSPLANT
     Route: 048
     Dates: start: 20170726
  11. BROTIZOLAM [Suspect]
     Active Substance: BROTIZOLAM
     Indication: LUNG TRANSPLANT
     Route: 048
     Dates: start: 20170728
  12. HYALEIN [Concomitant]
     Active Substance: HYALURONATE SODIUM
     Indication: PRODUCT USED FOR UNKNOWN INDICATION
     Route: 065
     Dates: start: 20170728
  13. PROGRAF [Suspect]
     Active Substance: TACROLIMUS\TACROLIMUS ANHYDROUS
     Indication: PROPHYLAXIS AGAINST TRANSPLANT REJECTION
     Route: 048
     Dates: start: 20170722, end: 20171107
  14. PREDONINE [Suspect]
     Active Substance: PREDNISOLONE
     Indication: LUNG TRANSPLANT
     Route: 048
     Dates: start: 20170713
  15. ELIQUIS [Suspect]
     Active Substance: APIXABAN
     Indication: LUNG TRANSPLANT
     Route: 048
     Dates: start: 20170727

REACTIONS (1)
  - Herpes zoster [Recovering/Resolving]

NARRATIVE: CASE EVENT DATE: 20180306
